FAERS Safety Report 6807018-X (Version None)
Quarter: 2010Q2

REPORT INFORMATION
  Report Type: 
  Country: None (occurrence: None)
  Receive Date: 20100628
  Receipt Date: 20100628
  Transmission Date: 20101027
  Serious: Yes (Hospitalization)
  Sender: FDA-Public Use
  Company Number: None

PATIENT
  Sex: Female
  Weight: 93.1 kg

DRUGS (3)
  1. CYTARABINE [Suspect]
     Dosage: 3800 MG
  2. DAUNORUBICIN HCL [Suspect]
     Dosage: 285 MG
  3. ETOPOSIDE [Suspect]

REACTIONS (14)
  - ACIDOSIS [None]
  - BRADYCARDIA [None]
  - CARDIO-RESPIRATORY ARREST [None]
  - DECUBITUS ULCER [None]
  - DIALYSIS [None]
  - GENERAL PHYSICAL HEALTH DETERIORATION [None]
  - HYPERKALAEMIA [None]
  - INFECTION [None]
  - NEUTROPENIA [None]
  - RENAL DISORDER [None]
  - RENAL FAILURE [None]
  - RESPIRATORY DISORDER [None]
  - SKIN LACERATION [None]
  - UNEVALUABLE EVENT [None]
